FAERS Safety Report 15953907 (Version 1)
Quarter: 2019Q1

REPORT INFORMATION
  Report Type: Spontaneous
  Country: US (occurrence: US)
  Receive Date: 20190212
  Receipt Date: 20190212
  Transmission Date: 20190417
  Serious: No
  Sender: FDA-Public Use
  Company Number: US-BAYER-2019-025149

PATIENT
  Age: 72 Year
  Sex: Female
  Weight: 73 kg

DRUGS (13)
  1. NAPROXEN. [Concomitant]
     Active Substance: NAPROXEN
  2. ACETAMINOPHEN. [Concomitant]
     Active Substance: ACETAMINOPHEN
  3. GAS RELIEF [Concomitant]
     Active Substance: DIMETHICONE
  4. LOTRIMIN ULTRA ANTIFUNGAL [Suspect]
     Active Substance: BUTENAFINE HYDROCHLORIDE
     Indication: VULVOVAGINAL MYCOTIC INFECTION
     Dosage: UNK UNK, BID
     Route: 067
     Dates: start: 20190122
  5. MECLIZINE [MECLOZINE HYDROCHLORIDE] [Concomitant]
  6. CALCIUM + D3 [CALCIUM;COLECALCIFEROL] [Concomitant]
  7. ASPIRIN. [Concomitant]
     Active Substance: ASPIRIN
  8. ACID REDUCER [RANITIDINE HYDROCHLORIDE] [Concomitant]
  9. COENZYME Q10 [Concomitant]
     Active Substance: UBIDECARENONE
  10. OMEPRAZOLE. [Concomitant]
     Active Substance: OMEPRAZOLE
  11. ATENOLOL. [Concomitant]
     Active Substance: ATENOLOL
  12. ALENDRONIC ACID [Concomitant]
     Active Substance: ALENDRONIC ACID
  13. ATORVASTATIN [Concomitant]
     Active Substance: ATORVASTATIN

REACTIONS (4)
  - Product administered at inappropriate site [Unknown]
  - Product prescribing error [Unknown]
  - Therapeutic response unexpected [Unknown]
  - Product administered at inappropriate site [Unknown]

NARRATIVE: CASE EVENT DATE: 20190122
